FAERS Safety Report 13135390 (Version 3)
Quarter: 2018Q2

REPORT INFORMATION
  Report Type: Report from Study
  Country: US (occurrence: US)
  Receive Date: 20170120
  Receipt Date: 20180504
  Transmission Date: 20180711
  Serious: Yes (Other)
  Sender: FDA-Public Use
  Company Number: PHHO2017US000840

PATIENT
  Age: 55 Year
  Sex: Male
  Weight: 80.7 kg

DRUGS (1)
  1. AFINITOR [Suspect]
     Active Substance: EVEROLIMUS
     Indication: PROSTATE CANCER
     Dosage: 10 MG, QD
     Route: 048
     Dates: start: 20160128, end: 20160404

REACTIONS (1)
  - Penile swelling [Recovering/Resolving]

NARRATIVE: CASE EVENT DATE: 20170103
